FAERS Safety Report 5928660-4 (Version None)
Quarter: 2008Q4

REPORT INFORMATION
  Report Type: 
  Country: None (occurrence: None)
  Receive Date: 20081023
  Receipt Date: 20081015
  Transmission Date: 20090506
  Serious: No
  Sender: FDA-Public Use
  Company Number: US-B.I. PHARMACEUTICALS,INC./RIDGEFIELD-2008-BP-15943BP

PATIENT

DRUGS (1)
  1. AGGRENOX [Suspect]

REACTIONS (1)
  - HEPATIC ENZYME INCREASED [None]
